FAERS Safety Report 8492932-2 (Version None)
Quarter: 2012Q3

REPORT INFORMATION
  Report Type: 
  Country: None (occurrence: None)
  Receive Date: 20120706
  Receipt Date: 20120628
  Transmission Date: 20120928
  Serious: Yes (Life-Threatening, Other)
  Sender: FDA-Public Use
  Company Number: US-GLAXOSMITHKLINE-A0982710A

PATIENT
  Age: 29 Year
  Sex: Female

DRUGS (5)
  1. LOVENOX [Concomitant]
  2. MORPHINE [Concomitant]
  3. DILAUDID [Concomitant]
  4. LACTATED RINGER'S [Concomitant]
  5. ZOFRAN [Suspect]
     Indication: PRODUCT USED FOR UNKNOWN INDICATION
     Dosage: 4MG UNKNOWN
     Route: 042
     Dates: start: 20120525, end: 20120601

REACTIONS (2)
  - CARDIAC ARREST [None]
  - RESPIRATORY ARREST [None]
